FAERS Safety Report 14310793 (Version 2)
Quarter: 2018Q1

REPORT INFORMATION
  Report Type: Spontaneous
  Country: TR (occurrence: TR)
  Receive Date: 20171220
  Receipt Date: 20180115
  Transmission Date: 20180509
  Serious: Yes (Hospitalization, Other)
  Sender: FDA-Public Use
  Company Number: TR-GILEAD-2017-0311368

PATIENT
  Age: 57 Year
  Sex: Female

DRUGS (1)
  1. HARVONI [Suspect]
     Active Substance: LEDIPASVIR\SOFOSBUVIR
     Indication: HEPATITIS C
     Dosage: UNK
     Route: 065
     Dates: start: 20171013

REACTIONS (5)
  - Encephalopathy [Recovered/Resolved]
  - Oesophageal varices haemorrhage [Recovered/Resolved]
  - Liver transplant [Recovered/Resolved]
  - Loss of consciousness [Recovered/Resolved]
  - Ascites [Recovered/Resolved]
